FAERS Safety Report 16565091 (Version 2)
Quarter: 2019Q3

REPORT INFORMATION
  Report Type: Report from Study
  Country: GB (occurrence: GB)
  Receive Date: 20190712
  Receipt Date: 20190719
  Transmission Date: 20191004
  Serious: Yes (Hospitalization)
  Sender: FDA-Public Use
  Company Number: GB-GILEAD-2019-0418010

PATIENT
  Age: 41 Year
  Sex: Female
  Weight: 54 kg

DRUGS (1)
  1. SOFOSBUVIR W/VELPATASVIR [Suspect]
     Active Substance: SOFOSBUVIR\VELPATASVIR
     Indication: HEPATITIS C
     Dosage: 1 DOSAGE FORM, QD
     Route: 048
     Dates: start: 20190424

REACTIONS (2)
  - Limb injury [Not Recovered/Not Resolved]
  - Product dose omission [Recovered/Resolved]

NARRATIVE: CASE EVENT DATE: 20190711
